FAERS Safety Report 22648354 (Version 1)
Quarter: 2023Q2

REPORT INFORMATION
  Report Type: Spontaneous
  Country: CN (occurrence: None)
  Receive Date: 20230628
  Receipt Date: 20230628
  Transmission Date: 20230721
  Serious: Yes (Other)
  Sender: FDA-Public Use
  Company Number: CN-ROCHE-3376062

PATIENT
  Age: 77 Year
  Sex: Male

DRUGS (19)
  1. MABTHERA [Suspect]
     Active Substance: RITUXIMAB
     Indication: Diffuse large B-cell lymphoma stage IV
     Dosage: R-CVP
     Route: 065
     Dates: start: 20230120
  2. MABTHERA [Suspect]
     Active Substance: RITUXIMAB
     Dosage: R-MINICHOP
     Route: 065
     Dates: start: 20230213
  3. MABTHERA [Suspect]
     Active Substance: RITUXIMAB
     Dosage: R-GEMOX
     Route: 065
     Dates: start: 20230427
  4. MABTHERA [Suspect]
     Active Substance: RITUXIMAB
     Dosage: POLA+R-DHAP
     Route: 065
     Dates: start: 20230515
  5. MABTHERA [Suspect]
     Active Substance: RITUXIMAB
     Route: 065
     Dates: start: 20230308
  6. MABTHERA [Suspect]
     Active Substance: RITUXIMAB
     Route: 065
     Dates: start: 20230329
  7. POLIVY [Suspect]
     Active Substance: POLATUZUMAB VEDOTIN-PIIQ
     Indication: Diffuse large B-cell lymphoma stage IV
     Route: 065
     Dates: start: 20230515
  8. CYCLOPHOSPHAMIDE [Concomitant]
     Active Substance: CYCLOPHOSPHAMIDE
     Dosage: R-CVP
     Dates: start: 20230120
  9. CYCLOPHOSPHAMIDE [Concomitant]
     Active Substance: CYCLOPHOSPHAMIDE
     Dosage: 13-FEB-2023, 08 MAR 2023, 29 MAR 2023, R-MINICHOP
  10. CYCLOPHOSPHAMIDE [Concomitant]
     Active Substance: CYCLOPHOSPHAMIDE
     Dosage: FC
     Dates: start: 20230608
  11. VINCRISTINE [Concomitant]
     Active Substance: VINCRISTINE
     Dosage: R-CVP?13-FEB-2023, 08 MAR 2023, 29 MAR 2023, R-MINICHOP
     Dates: start: 20230120
  12. DOXORUBICIN [Concomitant]
     Active Substance: DOXORUBICIN
     Dosage: 13-FEB-2023, 08 MAR 2023, 29 MAR 2023, R-MINICHOP
  13. PREDNISONE [Concomitant]
     Active Substance: PREDNISONE
     Dosage: R-CVP?13-FEB-2023, 08 MAR 2023, 29 MAR 2023, R-MINICHOP13-FEB-2023, 08 MAR 2023, 29 MAR 2023, R-MINI
     Dates: start: 20230120
  14. GEMCITABINE [Concomitant]
     Active Substance: GEMCITABINE
     Dosage: R-GEMOX
     Dates: start: 20230427
  15. OXALIPLATIN [Concomitant]
     Active Substance: OXALIPLATIN
     Dosage: R-GEMOX
     Dates: start: 20230427
  16. CISPLATIN [Concomitant]
     Active Substance: CISPLATIN
     Dosage: POLA+R-DHAP
     Dates: start: 20230515
  17. CYTARABINE [Concomitant]
     Active Substance: CYTARABINE
     Dosage: POLA+R-DHAP
     Dates: start: 20230515
  18. DEXAMETHASONE [Concomitant]
     Active Substance: DEXAMETHASONE
     Dosage: POLA+R-DHAP
     Dates: start: 20230515
  19. FLUDARABINE [Concomitant]
     Active Substance: FLUDARABINE PHOSPHATE
     Dosage: FC
     Dates: start: 20230608

REACTIONS (1)
  - Cytokine release syndrome [Recovered/Resolved]

NARRATIVE: CASE EVENT DATE: 20230601
